FAERS Safety Report 11025002 (Version 1)
Quarter: 2015Q2

REPORT INFORMATION
  Report Type: Report from Study
  Country: US (occurrence: US)
  Receive Date: 20150414
  Receipt Date: 20150414
  Transmission Date: 20150821
  Serious: Yes (Death)
  Sender: FDA-Public Use
  Company Number: US-ASTELLAS-2015US011956

PATIENT
  Sex: Female

DRUGS (4)
  1. AVASTIN [Suspect]
     Active Substance: BEVACIZUMAB
     Indication: GENITAL NEOPLASM MALIGNANT FEMALE
     Dosage: UNK, UNKNOWN FREQ.
     Route: 042
  2. XELODA [Suspect]
     Active Substance: CAPECITABINE
     Indication: GENITAL NEOPLASM MALIGNANT FEMALE
     Route: 048
  3. XELODA [Suspect]
     Active Substance: CAPECITABINE
     Indication: VULVAL CANCER
  4. ERLOTINIB [Suspect]
     Active Substance: ERLOTINIB
     Indication: GENITAL NEOPLASM MALIGNANT FEMALE
     Route: 048

REACTIONS (2)
  - Off label use [Unknown]
  - Death [Fatal]
